FAERS Safety Report 12384669 (Version 2)
Quarter: 2016Q2

REPORT INFORMATION
  Report Type: Spontaneous
  Country: US (occurrence: US)
  Receive Date: 20160519
  Receipt Date: 20160607
  Transmission Date: 20160815
  Serious: No
  Sender: FDA-Public Use
  Company Number: US-PFIZER INC-2016247766

PATIENT
  Age: 81 Year
  Sex: Female
  Weight: 56.7 kg

DRUGS (4)
  1. LISINOPRIL. [Concomitant]
     Active Substance: LISINOPRIL
     Indication: HYPERTENSION
     Dosage: 10 MG, UNK
  2. FISH OIL [Concomitant]
     Active Substance: FISH OIL
     Dosage: 1000 MG, LARGE GEL CAPSULE
  3. IBRANCE [Suspect]
     Active Substance: PALBOCICLIB
     Indication: NEOPLASM MALIGNANT
     Dosage: 75 MG, CYCLIC (ONCE A DAY, CAPSULE)
     Dates: start: 201508
  4. LETROZOLE. [Suspect]
     Active Substance: LETROZOLE
     Dosage: 2.5 MG, CYCLIC (ONCE A DAY, TABLET)
     Dates: start: 201508

REACTIONS (6)
  - Fatigue [Not Recovered/Not Resolved]
  - Tremor [Not Recovered/Not Resolved]
  - Tumour marker increased [Unknown]
  - Gait disturbance [Not Recovered/Not Resolved]
  - Asthenia [Not Recovered/Not Resolved]
  - Anaemia [Not Recovered/Not Resolved]
